FAERS Safety Report 19223664 (Version 1)
Quarter: 2021Q2

REPORT INFORMATION
  Report Type: Spontaneous
  Country: US (occurrence: US)
  Receive Date: 20210505
  Receipt Date: 20210505
  Transmission Date: 20210717
  Serious: No
  Sender: FDA-Public Use
  Company Number: US-ROCHE-2752386

PATIENT
  Sex: Female

DRUGS (1)
  1. ESBRIET [Suspect]
     Active Substance: PIRFENIDONE
     Indication: IDIOPATHIC PULMONARY FIBROSIS
     Dosage: 1 TABLET BY MOUTH IN THE MORNING, THEN 1 TABLET IN THE AFTERNOON AND 2 TABLETS AT BEDTIME
     Route: 048

REACTIONS (5)
  - Hypersensitivity [Unknown]
  - Intentional product use issue [Unknown]
  - Skin reaction [Unknown]
  - Decreased appetite [Unknown]
  - Off label use [Unknown]
